FAERS Safety Report 6566362-4 (Version None)
Quarter: 2010Q1

REPORT INFORMATION
  Report Type: 
  Country: None (occurrence: None)
  Receive Date: 20100202
  Receipt Date: 20100121
  Transmission Date: 20100710
  Serious: Yes (Hospitalization)
  Sender: FDA-Public Use
  Company Number: US-ELI_LILLY_AND_COMPANY-US201001004842

PATIENT
  Sex: Male

DRUGS (6)
  1. FORTEO [Suspect]
     Indication: OSTEOPOROSIS
     Dosage: 20 UG, DAILY (1/D)
     Dates: start: 20090801
  2. FLOMAX [Concomitant]
     Dosage: UNK, UNKNOWN
  3. BACLOFEN [Concomitant]
     Dosage: UNK, UNKNOWN
  4. CARBAMAZEPINE [Concomitant]
     Dosage: UNK, UNKNOWN
  5. PHENOBARBITAL [Concomitant]
     Dosage: UNK, UNKNOWN
  6. VALPROIC ACID [Concomitant]
     Dosage: UNK, UNKNOWN

REACTIONS (5)
  - HYPOTENSION [None]
  - HYPOTHERMIA [None]
  - LOSS OF CONSCIOUSNESS [None]
  - MALAISE [None]
  - URINARY TRACT INFECTION [None]
